FAERS Safety Report 4511713-5 (Version None)
Quarter: 2004Q4

REPORT INFORMATION
  Report Type: 
  Country: None (occurrence: None)
  Receive Date: 20041129
  Receipt Date: 20041119
  Transmission Date: 20050328
  Serious: Yes (Hospitalization)
  Sender: FDA-Public Use
  Company Number: CA-AMGEN-US099827

PATIENT
  Sex: Female
  Weight: 34.4 kg

DRUGS (9)
  1. ENBREL [Suspect]
     Indication: JUVENILE ARTHRITIS
     Route: 058
     Dates: start: 20030203, end: 20041025
  2. NAPROSYN [Concomitant]
     Dates: start: 19971003, end: 19971208
  3. TOLMETIN SODIUM [Concomitant]
     Dates: start: 19971208, end: 19980401
  4. PREDNISONE [Concomitant]
     Dates: start: 19971101, end: 20010601
  5. METHOTREXATE [Concomitant]
     Dates: start: 19971201
  6. FOLIC ACID [Concomitant]
     Dates: start: 19971201
  7. IBUPROFEN [Concomitant]
     Dates: start: 19980413, end: 20020731
  8. INFLIXIMAB [Concomitant]
     Dates: start: 20010125
  9. CELEBREX [Concomitant]
     Dates: start: 20020731

REACTIONS (3)
  - ARTHRITIS [None]
  - CONDITION AGGRAVATED [None]
  - DISLOCATION OF JOINT PROSTHESIS [None]
